APPROVED DRUG PRODUCT: LYVISPAH
Active Ingredient: BACLOFEN
Strength: 10MG/PACKET
Dosage Form/Route: GRANULES;ORAL
Application: N215422 | Product #002
Applicant: STRIDES PHARMA INTERNATIONAL AG
Approved: Nov 22, 2021 | RLD: Yes | RS: No | Type: DISCN

PATENTS:
Patent 11850225 | Expires: Sep 29, 2041
Patent 11850225 | Expires: Sep 29, 2041
Patent 10792262 | Expires: Jul 29, 2039
Patent 11491125 | Expires: Sep 29, 2041
Patent 11491125 | Expires: Sep 29, 2041
Patent 11654124 | Expires: Jul 29, 2039
Patent 11931328 | Expires: Jul 29, 2039